FAERS Safety Report 6757866-X (Version None)
Quarter: 2010Q2

REPORT INFORMATION
  Report Type: 
  Country: None (occurrence: None)
  Receive Date: 20100524
  Receipt Date: 20100224
  Transmission Date: 20101027
  Serious: Yes (Hospitalization)
  Sender: FDA-Public Use
  Company Number: 007832

PATIENT
  Sex: Male

DRUGS (4)
  1. CIMZIA [Suspect]
     Indication: CROHN'S DISEASE
     Dosage: (200 MG X/2 WEEKS SUBCUTANEOUS)
     Route: 058
     Dates: start: 20090309
  2. IRON [Concomitant]
  3. PREDNISONE [Concomitant]
  4. QUESTRAN [Concomitant]

REACTIONS (3)
  - ANAEMIA [None]
  - GASTROINTESTINAL INFLAMMATION [None]
  - RECTAL STENOSIS [None]
